FAERS Safety Report 20681079 (Version 2)
Quarter: 2022Q3

REPORT INFORMATION
  Report Type: Report from Study
  Country: FR (occurrence: FR)
  Receive Date: 20220406
  Receipt Date: 20220923
  Transmission Date: 20221027
  Serious: Yes (Hospitalization)
  Sender: FDA-Public Use
  Company Number: FR-ISA THERAPEUTICS B.V-FR-ISA-000188

PATIENT
  Age: 59 Year
  Sex: Male

DRUGS (3)
  1. CEMIPLIMAB [Suspect]
     Active Substance: CEMIPLIMAB
     Indication: Product used for unknown indication
     Dosage: 350 MILLIGRAM
     Route: 042
     Dates: start: 20210917, end: 20210917
  2. CEMIPLIMAB [Suspect]
     Active Substance: CEMIPLIMAB
     Dosage: 350 MILLIGRAM
     Route: 042
     Dates: start: 20211029, end: 20211029
  3. INVESTIGATIONAL PRODUCT [Suspect]
     Active Substance: INVESTIGATIONAL PRODUCT
     Indication: Product used for unknown indication
     Dosage: 100 MICROGRAM
     Route: 058
     Dates: start: 20210910, end: 20211029

REACTIONS (1)
  - Pyrexia [Recovered/Resolved]

NARRATIVE: CASE EVENT DATE: 20211029
